FAERS Safety Report 6816828-4 (Version None)
Quarter: 2010Q3

REPORT INFORMATION
  Report Type: 
  Country: None (occurrence: None)
  Receive Date: 20100706
  Receipt Date: 20100628
  Transmission Date: 20110219
  Serious: Yes (Disabling)
  Sender: FDA-Public Use
  Company Number: CA-ASTRAZENECA-2010SE30380

PATIENT
  Age: 74 Year
  Sex: Female

DRUGS (10)
  1. ATACAND [Suspect]
     Route: 048
  2. FLOVENT [Concomitant]
     Route: 065
  3. GLYBURIDE [Concomitant]
     Route: 065
  4. HYDROCHLOROTHIAZIDE [Concomitant]
     Route: 065
  5. METFORMIN HCL [Concomitant]
     Route: 065
  6. NAPROXEN [Concomitant]
     Route: 065
  7. NORVASC [Concomitant]
     Route: 065
  8. NOVASEN [Concomitant]
     Route: 065
  9. VENTOLIN DISKUS [Concomitant]
     Route: 065
  10. ZANTAC [Concomitant]
     Route: 065

REACTIONS (6)
  - ANXIETY [None]
  - CHEST PAIN [None]
  - DEPRESSION [None]
  - HEADACHE [None]
  - HYPERHIDROSIS [None]
  - TEARFULNESS [None]
